FAERS Safety Report 8066421-3 (Version None)
Quarter: 2012Q1

REPORT INFORMATION
  Report Type: 
  Country: None (occurrence: None)
  Receive Date: 20120124
  Receipt Date: 20120124
  Transmission Date: 20120608
  Serious: Yes (Life-Threatening, Other)
  Sender: FDA-Public Use
  Company Number: None

PATIENT
  Age: 20 Year
  Sex: Male
  Weight: 77.11 kg

DRUGS (1)
  1. MEFLOQUINE HYDROCHLORIDE [Suspect]
     Indication: MALARIA
     Dates: start: 19940104, end: 19940301

REACTIONS (12)
  - MOOD SWINGS [None]
  - PERSONALITY CHANGE [None]
  - PARTNER STRESS [None]
  - SUICIDAL IDEATION [None]
  - MENTAL DISORDER [None]
  - HALLUCINATION [None]
  - AGGRESSION [None]
  - INSOMNIA [None]
  - DEPRESSION [None]
  - IRRITABILITY [None]
  - BALANCE DISORDER [None]
  - ANGER [None]
